FAERS Safety Report 7915095-8 (Version None)
Quarter: 2011Q4

REPORT INFORMATION
  Report Type: 
  Country: None (occurrence: None)
  Receive Date: 20111115
  Receipt Date: 20111110
  Transmission Date: 20120403
  Serious: Yes (Hospitalization)
  Sender: FDA-Public Use
  Company Number: US-MERCK-1108USA01133

PATIENT
  Age: 40 Year
  Sex: Female
  Weight: 60 kg

DRUGS (1)
  1. FOSAMAX [Suspect]
     Indication: OSTEOPENIA
     Route: 048
     Dates: start: 20060913, end: 20091101

REACTIONS (26)
  - ANAEMIA [None]
  - PATELLOFEMORAL PAIN SYNDROME [None]
  - HYPOTHYROIDISM [None]
  - CLAVICLE FRACTURE [None]
  - DEVICE FAILURE [None]
  - FALL [None]
  - FIBROCYSTIC BREAST DISEASE [None]
  - SYNOVITIS [None]
  - PYREXIA [None]
  - TENDON DISORDER [None]
  - NASAL DRYNESS [None]
  - HEPATITIS B [None]
  - LEUKOCYTOSIS [None]
  - VERTIGO [None]
  - HORDEOLUM [None]
  - NECK PAIN [None]
  - ARTHRALGIA [None]
  - DRY EYE [None]
  - FEMUR FRACTURE [None]
  - CHEST PAIN [None]
  - MUSCULOSKELETAL CHEST PAIN [None]
  - MUSCULAR WEAKNESS [None]
  - OSTEOPOROSIS [None]
  - MIGRAINE [None]
  - TOOTH DISORDER [None]
  - FATIGUE [None]
